FAERS Safety Report 9919696 (Version 1)
Quarter: 2014Q1

REPORT INFORMATION
  Report Type: Other
  Country: PT (occurrence: PT)
  Receive Date: 20140224
  Receipt Date: 20140224
  Transmission Date: 20141002
  Serious: Yes (Other)
  Sender: FDA-Public Use
  Company Number: PT-BRISTOL-MYERS SQUIBB COMPANY-20232443

PATIENT
  Sex: 0

DRUGS (4)
  1. CETUXIMAB [Suspect]
     Indication: SQUAMOUS CELL CARCINOMA OF HEAD AND NECK
     Dosage: 250 MG/M2 1 IN 1 WK.
     Route: 042
     Dates: start: 200901, end: 201212
  2. CISPLATIN [Suspect]
     Indication: METASTATIC SQUAMOUS CELL CARCINOMA
     Dosage: DAY 1
     Dates: start: 200901, end: 201212
  3. CARBOPLATIN [Suspect]
     Indication: METASTATIC SQUAMOUS CELL CARCINOMA
     Dosage: 1 DF: AUC 5 UNITS:DAY 1
     Dates: start: 200901, end: 201212
  4. 5-FLUOROURACIL [Suspect]
     Indication: METASTATIC SQUAMOUS CELL CARCINOMA
     Dates: start: 200901, end: 201212

REACTIONS (1)
  - Nephropathy toxic [Unknown]
